FAERS Safety Report 12835626 (Version 3)
Quarter: 2016Q4

REPORT INFORMATION
  Report Type: Report from Study
  Country: US (occurrence: US)
  Receive Date: 20161011
  Receipt Date: 20161104
  Transmission Date: 20170207
  Serious: Yes (Other)
  Sender: FDA-Public Use
  Company Number: US-AMGEN-USASP2016137523

PATIENT
  Age: 50 Year
  Sex: Female

DRUGS (12)
  1. MACROBID [Concomitant]
     Active Substance: NITROFURANTOIN\NITROFURANTOIN MONOHYDRATE
     Indication: BLADDER DISORDER
     Dosage: UNK
  2. NEXIUM [Concomitant]
     Active Substance: ESOMEPRAZOLE MAGNESIUM
     Dosage: UNK
  3. WELLBUTRIN [Concomitant]
     Active Substance: BUPROPION HYDROCHLORIDE
     Dosage: UNK
  4. ZIAC [Concomitant]
     Active Substance: BISOPROLOL FUMARATE\HYDROCHLOROTHIAZIDE
     Dosage: UNK
  5. ENBREL [Suspect]
     Active Substance: ETANERCEPT
     Indication: RHEUMATOID ARTHRITIS
     Dosage: 50 MG, QWK
     Route: 065
     Dates: start: 201608
  6. ZYRTEC [Concomitant]
     Active Substance: CETIRIZINE HYDROCHLORIDE
     Dosage: UNK
  7. METHOTREXATE. [Suspect]
     Active Substance: METHOTREXATE
     Indication: PRODUCT USED FOR UNKNOWN INDICATION
     Dosage: UNK
     Route: 065
  8. NORVASC [Concomitant]
     Active Substance: AMLODIPINE BESYLATE
     Dosage: UNK
  9. PRAVASTATIN. [Concomitant]
     Active Substance: PRAVASTATIN
     Dosage: UNK
  10. TOPAMAX [Concomitant]
     Active Substance: TOPIRAMATE
     Dosage: UNK
  11. CLONOPIN [Concomitant]
     Active Substance: CLONAZEPAM
     Dosage: UNK
  12. ELAVIL [Concomitant]
     Active Substance: AMITRIPTYLINE HYDROCHLORIDE
     Indication: BLADDER DISORDER
     Dosage: UNK

REACTIONS (18)
  - Musculoskeletal stiffness [Unknown]
  - Infection [Recovered/Resolved]
  - Underdose [Unknown]
  - Bladder disorder [Unknown]
  - Fibromyalgia [Unknown]
  - Cystitis noninfective [Unknown]
  - Injection site haemorrhage [Unknown]
  - Cellulitis [Not Recovered/Not Resolved]
  - Wrong technique in product usage process [Unknown]
  - Ear disorder [Unknown]
  - Joint swelling [Unknown]
  - Haemorrhage [Recovered/Resolved]
  - Secretion discharge [Unknown]
  - Pain [Unknown]
  - Upper-airway cough syndrome [Unknown]
  - Feeling abnormal [Unknown]
  - Drug dose omission [Unknown]
  - Productive cough [Unknown]

NARRATIVE: CASE EVENT DATE: 2016
